FAERS Safety Report 17349083 (Version 1)
Quarter: 2020Q1

REPORT INFORMATION
  Report Type: Report from Study
  Country: US (occurrence: US)
  Receive Date: 20200129
  Receipt Date: 20200129
  Transmission Date: 20200409
  Serious: No
  Sender: FDA-Public Use
  Company Number: US-EXELIXIS-CABO-19025146

PATIENT
  Sex: Male

DRUGS (3)
  1. CABOMETYX [Suspect]
     Active Substance: CABOZANTINIB S-MALATE
     Indication: PANCREATIC CARCINOMA
     Dosage: 40 MG, QD
     Dates: end: 20191116
  2. CABOMETYX [Suspect]
     Active Substance: CABOZANTINIB S-MALATE
     Indication: RENAL CANCER
     Dosage: 40 MG, QD
     Dates: start: 20191011
  3. CABOMETYX [Suspect]
     Active Substance: CABOZANTINIB S-MALATE
     Indication: HEPATIC CANCER
     Dosage: 40 MG, QD

REACTIONS (7)
  - Oral pain [Recovered/Resolved]
  - Vision blurred [Recovered/Resolved]
  - Fatigue [Unknown]
  - Hypertension [Not Recovered/Not Resolved]
  - Decreased appetite [Recovering/Resolving]
  - Malaise [Unknown]
  - Platelet count decreased [Unknown]
